FAERS Safety Report 19670962 (Version 2)
Quarter: 2022Q1

REPORT INFORMATION
  Report Type: Spontaneous
  Country: US (occurrence: US)
  Receive Date: 20210806
  Receipt Date: 20220301
  Transmission Date: 20220423
  Serious: No
  Sender: FDA-Public Use
  Company Number: US-PFIZER INC-2017298717

PATIENT
  Age: 35 Year
  Sex: Male

DRUGS (11)
  1. LYRICA [Suspect]
     Active Substance: PREGABALIN
     Indication: Neuropathy peripheral
     Dosage: 150 MG, 2X/DAY
     Route: 048
     Dates: start: 20170329
  2. LYRICA [Suspect]
     Active Substance: PREGABALIN
     Dosage: 225 MG, 2X/DAY
     Route: 048
  3. LYRICA [Suspect]
     Active Substance: PREGABALIN
     Dosage: 300 MG, 2X/DAY
     Route: 048
  4. BACLOFEN [Concomitant]
     Active Substance: BACLOFEN
     Dosage: 40 MG, 3X/DAY, (2 (TWO) TABLET)
     Dates: start: 20161223
  5. HYDROCODONE BITARTRATE AND ACETAMINOPHEN [Concomitant]
     Active Substance: ACETAMINOPHEN\HYDROCODONE BITARTRATE
     Dosage: 1 DF, 4X/DAY, [HYDROCODONE BITARTRATE 10 MG]/[PARACETAMOL 325 MG]
     Dates: start: 20170227
  6. MORPHINE SULFATE [Concomitant]
     Active Substance: MORPHINE SULFATE
     Dosage: 15 MG, 3X/DAY
     Dates: start: 20170227
  7. DULOXETINE HYDROCHLORIDE [Concomitant]
     Active Substance: DULOXETINE HYDROCHLORIDE
     Dosage: 60 MG, 1X/DAY, (HS)
     Route: 048
     Dates: start: 20161223
  8. DULOXETINE HYDROCHLORIDE [Concomitant]
     Active Substance: DULOXETINE HYDROCHLORIDE
     Dosage: 30 MG, 1X/DAY, (QD)
     Route: 048
     Dates: start: 20161223
  9. CLONAZEPAM [Concomitant]
     Active Substance: CLONAZEPAM
     Indication: Muscle spasticity
     Dosage: 0.5 MG, 4X/DAY, (1H (ONE HALF) TABLET Q6HRS)
     Dates: start: 20170308
  10. VITAMIN C [Concomitant]
     Active Substance: ASCORBIC ACID
     Dosage: UNK, 1X/DAY, (QD)
     Route: 048
  11. VITAMIN D [Concomitant]
     Active Substance: VITAMIN D NOS
     Dosage: 1000 IU, 1X/DAY, (QD)
     Route: 048

REACTIONS (4)
  - Limb injury [Unknown]
  - Muscle twitching [Unknown]
  - Tremor [Unknown]
  - Speech disorder [Unknown]
